FAERS Safety Report 9033542 (Version 1)
Quarter: 2013Q1

REPORT INFORMATION
  Report Type: Spontaneous
  Country: US (occurrence: US)
  Receive Date: 20130128
  Receipt Date: 20130128
  Transmission Date: 20140127
  Serious: No
  Sender: FDA-Public Use
  Company Number: US-MYLANLABS-2012S1021115

PATIENT
  Age: 42 Year
  Sex: Female

DRUGS (5)
  1. BUPROPION HYDROCHLORIDE EXTENDED RELEASE (XL) [Suspect]
     Indication: DEPRESSION
     Route: 048
     Dates: start: 201011, end: 201210
  2. BUPROPION HYDROCHLORIDE EXTENDED RELEASE (XL) [Suspect]
     Indication: MOOD SWINGS
     Route: 048
     Dates: start: 201011, end: 201210
  3. MELATONIN [Concomitant]
     Indication: INITIAL INSOMNIA
  4. VITAMIN [Concomitant]
  5. AMBIEN [Concomitant]
     Dates: start: 201008, end: 201009

REACTIONS (4)
  - Drug ineffective [Recovered/Resolved]
  - Mood swings [Recovered/Resolved]
  - Depression [Recovered/Resolved]
  - Affect lability [Recovered/Resolved]
